FAERS Safety Report 22203453 (Version 2)
Quarter: 2023Q2

REPORT INFORMATION
  Report Type: Spontaneous
  Country: CN (occurrence: CN)
  Receive Date: 20230412
  Receipt Date: 20230421
  Transmission Date: 20230721
  Serious: Yes (Hospitalization)
  Sender: FDA-Public Use
  Company Number: CN-002147023-NVSC2023CN083394

PATIENT
  Age: 54 Year
  Sex: Female
  Weight: 60 kg

DRUGS (3)
  1. CARBAMAZEPINE [Suspect]
     Active Substance: CARBAMAZEPINE
     Indication: Ill-defined disorder
     Dosage: 0.2 G, BID
     Route: 048
     Dates: start: 20230204, end: 20230208
  2. PREDNISONE ACETATE [Concomitant]
     Active Substance: PREDNISONE ACETATE
     Indication: Neuromyelitis optica spectrum disorder
     Dosage: 50 MG, QD
     Route: 048
     Dates: start: 20230204, end: 20230213
  3. LORATADINE [Concomitant]
     Active Substance: LORATADINE
     Indication: Product used for unknown indication
     Dosage: UNK
     Route: 065
     Dates: start: 20230208

REACTIONS (6)
  - Hypoaesthesia [Unknown]
  - Paraesthesia [Unknown]
  - Electric shock [Unknown]
  - Rash erythematous [Recovered/Resolved]
  - Sleep disorder [Unknown]
  - Pruritus [Recovered/Resolved]

NARRATIVE: CASE EVENT DATE: 20230207
